FAERS Safety Report 5959868-X (Version None)
Quarter: 2008Q4

REPORT INFORMATION
  Report Type: 
  Country: None (occurrence: None)
  Receive Date: 20081120
  Receipt Date: 20081110
  Transmission Date: 20090506
  Serious: Yes (Other)
  Sender: FDA-Public Use
  Company Number: DE-WYE-H06363808

PATIENT
  Sex: Female

DRUGS (8)
  1. CORDAREX [Suspect]
     Indication: TACHYARRHYTHMIA
     Dosage: UNSPECIFIED
     Route: 042
     Dates: start: 20081001, end: 20081001
  2. CORDAREX [Suspect]
     Dosage: UNSPECIFIED
     Route: 048
     Dates: start: 20080101
  3. CLINDAMYCIN HCL [Concomitant]
     Route: 048
  4. TRIARESE [Concomitant]
     Route: 048
  5. DILZEM - SLOW RELEASE ^ELAN^ [Concomitant]
     Route: 048
  6. NEXIUM [Concomitant]
     Route: 048
  7. CIPRO [Concomitant]
     Route: 048
  8. CIPRALEX [Concomitant]
     Route: 048

REACTIONS (5)
  - INJECTION SITE ERYTHEMA [None]
  - INJECTION SITE EXTRAVASATION [None]
  - INJECTION SITE NECROSIS [None]
  - INJECTION SITE ULCER [None]
  - INJECTION SITE VESICLES [None]
